FAERS Safety Report 8008897-3 (Version None)
Quarter: 2011Q4

REPORT INFORMATION
  Report Type: 
  Country: None (occurrence: None)
  Receive Date: 20111227
  Receipt Date: 20111219
  Transmission Date: 20120403
  Serious: Yes (Life-Threatening, Other)
  Sender: FDA-Public Use
  Company Number: JP-CELGENEUS-087-50794-11052285

PATIENT
  Sex: Female
  Weight: 44 kg

DRUGS (12)
  1. PURSENNID [Concomitant]
     Dosage: 12 MILLIGRAM
     Route: 048
     Dates: end: 20110515
  2. ALLOID G [Concomitant]
     Dosage: 30 MILLILITER
     Route: 048
     Dates: start: 20110516, end: 20110605
  3. MUCOSTA [Concomitant]
     Dosage: 4 DF
     Route: 048
     Dates: end: 20110515
  4. GRANISETRON [Concomitant]
     Dosage: 3 MILLIGRAM
     Route: 041
     Dates: start: 20110510, end: 20110514
  5. ITRACONAZOLE [Concomitant]
     Dosage: 20 MILLIGRAM
     Route: 048
     Dates: start: 20110516, end: 20110621
  6. AMIKACIN SULFATE [Concomitant]
     Dosage: 400 MILLIGRAM
     Route: 041
     Dates: start: 20110515, end: 20110515
  7. SLOW-K [Concomitant]
     Dosage: 2.4 GRAM
     Route: 048
     Dates: start: 20110518, end: 20110523
  8. VIDAZA [Suspect]
     Indication: MYELODYSPLASTIC SYNDROME
     Dosage: 75 MILLIGRAM/SQ. METER
     Route: 041
     Dates: start: 20110510, end: 20110515
  9. VANCOMYCIN HCL [Concomitant]
     Dosage: 1 GRAM
     Route: 041
     Dates: start: 20110515, end: 20110515
  10. GLAKAY [Concomitant]
     Dosage: 4 DF
     Route: 048
  11. MAGMITT [Concomitant]
     Dosage: 750 MILLIGRAM
     Route: 048
  12. MAXIPIME [Concomitant]
     Dosage: 2 GRAM
     Route: 041
     Dates: start: 20110515, end: 20110527

REACTIONS (10)
  - SEPTIC SHOCK [None]
  - SEPSIS [None]
  - BLOOD CREATININE INCREASED [None]
  - HYPOTENSION [None]
  - GASTRIC MUCOSAL LESION [None]
  - GASTRITIS [None]
  - HYPOXIA [None]
  - PYREXIA [None]
  - ATRIAL FIBRILLATION [None]
  - FEBRILE NEUTROPENIA [None]
